FAERS Safety Report 5126141-1 (Version None)
Quarter: 2006Q3

REPORT INFORMATION
  Report Type: 
  Country: None (occurrence: None)
  Receive Date: 20060823
  Receipt Date: 20060525
  Transmission Date: 20061208
  Serious: Yes (Other)
  Sender: FDA-Public Use
  Company Number: 2006068430

PATIENT
  Age: 37 Year
  Sex: Male
  Weight: 83.9154 kg

DRUGS (2)
  1. NORVASC [Suspect]
     Indication: HYPERTENSION
     Dosage: 5 MG (5 MG, DAILY INTERVAL: EVERY DAY), UNKNOWN
  2. MINOCYCLINE HCL [Suspect]
     Indication: ACNE
     Dosage: 200 MG (100 MG, BID INTERVAL: EVERY DAY), UNKNOWN
     Dates: start: 20050101

REACTIONS (7)
  - DRY THROAT [None]
  - HYPERSENSITIVITY [None]
  - JOINT STIFFNESS [None]
  - MIGRAINE [None]
  - NAUSEA [None]
  - PYREXIA [None]
  - WEIGHT DECREASED [None]
